FAERS Safety Report 7533587-0 (Version None)
Quarter: 2011Q2

REPORT INFORMATION
  Report Type: 
  Country: None (occurrence: None)
  Receive Date: 20110608
  Receipt Date: 20060220
  Transmission Date: 20111010
  Serious: Yes (Hospitalization)
  Sender: FDA-Public Use
  Company Number: PHNU2006PL01082

PATIENT
  Sex: Male
  Weight: 80 kg

DRUGS (1)
  1. FLUVASTATIN SODIUM [Suspect]
     Indication: HYPERCHOLESTEROLAEMIA
     Dosage: 80 MG, QD
     Route: 048
     Dates: start: 20050807, end: 20050919

REACTIONS (1)
  - SUPRAVENTRICULAR TACHYCARDIA [None]
